FAERS Safety Report 4394821-1 (Version None)
Quarter: 2004Q3

REPORT INFORMATION
  Report Type: 
  Country: None (occurrence: None)
  Receive Date: 20040707
  Receipt Date: 20040624
  Transmission Date: 20050211
  Serious: Yes (Hospitalization, Disabling, Other)
  Sender: FDA-Public Use
  Company Number: 2004036814

PATIENT
  Age: 80 Year
  Sex: Female
  Weight: 64.8644 kg

DRUGS (18)
  1. GEODON [Suspect]
     Indication: ABNORMAL BEHAVIOUR
     Dosage: 40 MG (20 MG, 2 IN 1D), ORAL
     Route: 048
     Dates: start: 20040423
  2. ALLOPURINOL [Concomitant]
  3. ACETYLSALICYLIC ACID SRT [Concomitant]
  4. ATENOLOL [Concomitant]
  5. CITALORPAM (CITALOPRAM) [Concomitant]
  6. HEPARIN [Concomitant]
  7. FOLIC ACID [Concomitant]
  8. INSULIN [Concomitant]
  9. ISOSORBIDE DINITRATE [Concomitant]
  10. LEVOTHYROXINE SODIUM [Concomitant]
  11. MAGNESIUM OXIDE (MAGNESIUM OXIDE) [Concomitant]
  12. MEGESTROL (MEGESTROL) [Concomitant]
  13. OXYCODONE HCL [Concomitant]
  14. PHENYTOIN [Concomitant]
  15. RANITIDINE [Concomitant]
  16. VERPAMIL (VERAPAMIL) [Concomitant]
  17. ZINC (ZINC) [Concomitant]
  18. FUROSEMIDE [Concomitant]

REACTIONS (7)
  - ABNORMAL BEHAVIOUR [None]
  - AGGRESSION [None]
  - CONDITION AGGRAVATED [None]
  - DYSKINESIA [None]
  - DYSTONIA [None]
  - EOSINOPHILIA [None]
  - THERAPEUTIC RESPONSE DECREASED [None]
